FAERS Safety Report 18321165 (Version 1)
Quarter: 2020Q3

REPORT INFORMATION
  Report Type: Spontaneous
  Country: FR (occurrence: FR)
  Receive Date: 20200928
  Receipt Date: 20200928
  Transmission Date: 20201103
  Serious: Yes (Hospitalization)
  Sender: FDA-Public Use
  Company Number: FR-TEVA-2020-FR-1831544

PATIENT
  Age: 68 Year
  Sex: Male
  Weight: 96 kg

DRUGS (10)
  1. DELURSAN 500 MG, COMPRIME PELLICULE SECABLE [Concomitant]
     Active Substance: URSODIOL
     Dosage: 1000 MG
     Route: 048
  2. HYDROCORTISONE. [Concomitant]
     Active Substance: HYDROCORTISONE
     Dosage: 20 MG
     Route: 048
  3. PRAVASTATINE SODIQUE [Suspect]
     Active Substance: PRAVASTATIN SODIUM
     Indication: PRODUCT USED FOR UNKNOWN INDICATION
     Dosage: 20 MG
     Route: 048
     Dates: start: 201905
  4. NOVATREX (METHOTREXATE) [Concomitant]
     Active Substance: METHOTREXATE SODIUM
     Dosage: 5 MG
     Route: 048
  5. SPECIAFOLDINE 5 MG, COMPRIME [Concomitant]
     Active Substance: FOLIC ACID
     Dosage: 5 MG
     Route: 048
  6. LEVOTHYROX 150 MICROGRAMMES, COMPRIME SECABLE [Concomitant]
     Active Substance: LEVOTHYROXINE SODIUM
     Dosage: 150 MICROGRAM
     Route: 048
  7. ANDROTARDYL 250 MG/1 ML, SOLUTION INJECTABLE INTRAMUSCULAIRE [Concomitant]
     Active Substance: TESTOSTERONE
     Dosage: 250 MG
     Route: 030
  8. GAVISCON [Concomitant]
     Active Substance: ALUMINUM HYDROXIDE\MAGNESIUM CARBONATE
     Route: 048
  9. UROREC 8 MG, GELULE [Concomitant]
     Active Substance: SILODOSIN
     Dosage: 8 MG
     Route: 048
  10. MINIRINMELT 120 MICROGRAMMES, LYOPHILISAT ORAL [Concomitant]
     Dosage: 360 MICROGRAM
     Route: 048

REACTIONS (1)
  - Pancreatitis acute [Recovering/Resolving]

NARRATIVE: CASE EVENT DATE: 20200822
